FAERS Safety Report 24779991 (Version 3)
Quarter: 2025Q1

REPORT INFORMATION
  Report Type: Spontaneous
  Country: DE (occurrence: DE)
  Receive Date: 20241227
  Receipt Date: 20250107
  Transmission Date: 20250409
  Serious: No
  Sender: SANOFI AVENTIS
  Company Number: DE-SANOFI-02348709

PATIENT
  Age: 75 Year
  Sex: Male
  Weight: 59 kg

DRUGS (11)
  1. MULTAQ [Suspect]
     Active Substance: DRONEDARONE
     Dates: start: 20240912, end: 20240920
  2. TROMCARDIN DUO [Concomitant]
  3. VITAMIN D [Concomitant]
     Active Substance: VITAMIN D NOS
  4. TESTOSTERONE [Concomitant]
     Active Substance: TESTOSTERONE
  5. PRAMIPEXOLE DIHYDROCHLORIDE [Concomitant]
     Active Substance: PRAMIPEXOLE DIHYDROCHLORIDE
     Indication: Polyneuropathy
  6. TILIDINE [Concomitant]
     Active Substance: TILIDINE
  7. LERCANIDIPINE [Concomitant]
     Active Substance: LERCANIDIPINE
     Indication: Blood pressure measurement
     Dosage: 2 DF, QD (2X1 DAILY)
     Route: 048
  8. TORSEMIDE [Concomitant]
     Active Substance: TORSEMIDE
     Dosage: UNK UNK, QD (1X1)
     Dates: start: 20241108
  9. BISOPROLOL [Concomitant]
     Active Substance: BISOPROLOL
     Indication: Tachycardia
     Dosage: 2 DF, QD (2X5 MG DAILY)
     Route: 048
     Dates: start: 2010
  10. SIMVASTATIN [Concomitant]
     Active Substance: SIMVASTATIN
     Indication: Coronary artery disease
     Dosage: 1 DF, QD (1 TABLET IN THE EVENING)
     Route: 048
     Dates: start: 2010
  11. MARCUMAR [Concomitant]
     Active Substance: PHENPROCOUMON
     Indication: Aortic valve repair
     Dosage: QD
     Route: 048
     Dates: start: 1966

REACTIONS (2)
  - Blood creatinine increased [Unknown]
  - Liver function test increased [Recovering/Resolving]
